FAERS Safety Report 5842724-5 (Version None)
Quarter: 2008Q3

REPORT INFORMATION
  Report Type: 
  Country: None (occurrence: None)
  Receive Date: 20080808
  Receipt Date: 20080728
  Transmission Date: 20090109
  Serious: Yes (Hospitalization)
  Sender: FDA-Public Use
  Company Number: 236517J08USA

PATIENT
  Age: 59 Year
  Sex: Female
  Weight: 86.1834 kg

DRUGS (5)
  1. REBIF [Suspect]
     Indication: MULTIPLE SCLEROSIS
     Dosage: 44 MCG,3 IN 1 WEEKS, SUBCUTANEOUS
     Route: 058
     Dates: start: 20061204
  2. BACLOFEN [Concomitant]
  3. TIZANIDINE HCL [Concomitant]
  4. LEXAPRO [Concomitant]
  5. DETROL [Concomitant]

REACTIONS (1)
  - PANCREATIC CYST [None]
